FAERS Safety Report 18015388 (Version 1)
Quarter: 2020Q3

REPORT INFORMATION
  Report Type: Spontaneous
  Country: US (occurrence: US)
  Receive Date: 20200713
  Receipt Date: 20200713
  Transmission Date: 20201103
  Serious: Yes (Hospitalization)
  Sender: FDA-Public Use
  Company Number: US-GLAXOSMITHKLINE-US2020123787

PATIENT
  Age: 62 Year
  Sex: Male

DRUGS (1)
  1. VOLTAREN ARTHRITIS PAIN [Suspect]
     Active Substance: DICLOFENAC SODIUM
     Indication: PAIN
     Dosage: UNK
     Dates: start: 20200629, end: 20200702

REACTIONS (9)
  - Chromaturia [Unknown]
  - Abdominal pain upper [Not Recovered/Not Resolved]
  - Yellow skin [Not Recovered/Not Resolved]
  - Lethargy [Not Recovered/Not Resolved]
  - Liver disorder [Unknown]
  - Time perception altered [Unknown]
  - Asthenia [Unknown]
  - Nausea [Recovering/Resolving]
  - Ocular icterus [Unknown]

NARRATIVE: CASE EVENT DATE: 20200701
